FAERS Safety Report 4312275-8 (Version None)
Quarter: 2004Q1

REPORT INFORMATION
  Report Type: 
  Country: None (occurrence: None)
  Receive Date: 20040303
  Receipt Date: 20040223
  Transmission Date: 20041129
  Serious: Yes (Hospitalization, Other)
  Sender: FDA-Public Use
  Company Number: 2004-01-1480

PATIENT
  Age: 62 Year
  Sex: Male
  Weight: 58 kg

DRUGS (2)
  1. REBETOL [Suspect]
     Indication: HEPATITIS C
     Dosage: 600 MG QD ORAL
     Route: 048
     Dates: start: 20031201, end: 20031222
  2. INTRON A [Suspect]
     Indication: HEPATITIS C
     Dosage: 6 MU 6X/WK INTRAMUSCULAR
     Route: 030
     Dates: start: 20031201, end: 20031222

REACTIONS (3)
  - RETINAL HAEMORRHAGE [None]
  - RETINAL OEDEMA [None]
  - RETINOPATHY [None]
